FAERS Safety Report 4571172-3 (Version None)
Quarter: 2005Q1

REPORT INFORMATION
  Report Type: 
  Country: None (occurrence: None)
  Receive Date: 20050202
  Receipt Date: 20040906
  Transmission Date: 20050727
  Serious: Yes (Other)
  Sender: FDA-Public Use
  Company Number: T03-SWI-02920-01

PATIENT
  Age: 37 Year
  Sex: Male

DRUGS (3)
  1. ESCITALOPRAM (ESCITALOPRAM [Suspect]
     Indication: GENERALISED ANXIETY DISORDER
  2. PLACEBO(PLACEBO) [Suspect]
     Indication: GENERALISED ANXIETY DISORDER
     Dosage: 1 TABLET QD PO
     Route: 048
     Dates: start: 20030509, end: 20030801
  3. SIMILASAN [Concomitant]

REACTIONS (5)
  - ELECTROENCEPHALOGRAM ABNORMAL [None]
  - HYPERSOMNIA [None]
  - HYPERVENTILATION [None]
  - SYNCOPE [None]
  - TREMOR [None]
